FAERS Safety Report 20414428 (Version 1)
Quarter: 2022Q1

REPORT INFORMATION
  Report Type: Report from Study
  Country: JP (occurrence: JP)
  Receive Date: 20220202
  Receipt Date: 20220202
  Transmission Date: 20220423
  Serious: Yes (Death, Hospitalization)
  Sender: FDA-Public Use
  Company Number: JP-CHUGAI-A2014027779ROCHE

PATIENT
  Age: 67 Year
  Sex: Male
  Weight: 56 kg

DRUGS (19)
  1. BEVACIZUMAB [Suspect]
     Active Substance: BEVACIZUMAB
     Indication: Rectal cancer
     Dosage: DOSAGE IS UNCERTAIN.
     Route: 041
     Dates: start: 20111106, end: 20130301
  2. BEVACIZUMAB [Suspect]
     Active Substance: BEVACIZUMAB
     Indication: Rectal cancer
     Dosage: DOSAGE IS UNCERTAIN.
     Route: 041
     Dates: start: 20130619, end: 20140117
  3. BEVACIZUMAB [Suspect]
     Active Substance: BEVACIZUMAB
     Indication: Rectal cancer
     Route: 041
     Dates: start: 20140305, end: 20140604
  4. TIPIRACIL HYDROCHLORIDE\TRIFLURIDINE [Concomitant]
     Active Substance: TIPIRACIL HYDROCHLORIDE\TRIFLURIDINE
     Indication: Rectal cancer
     Dosage: 110MG,2 TIMES IN 1DAY
     Route: 048
     Dates: start: 20140305, end: 20140613
  5. TIPIRACIL HYDROCHLORIDE\TRIFLURIDINE [Concomitant]
     Active Substance: TIPIRACIL HYDROCHLORIDE\TRIFLURIDINE
     Dosage: 110MG,2 TIMES IN 1DAY
     Route: 048
     Dates: start: 20140604, end: 20140613
  6. XELODA [Concomitant]
     Active Substance: CAPECITABINE
     Indication: Rectal cancer
     Dosage: DOSAGE IS UNCERTAIN.
     Route: 048
     Dates: start: 20111106, end: 20130301
  7. OXALIPLATIN [Concomitant]
     Active Substance: OXALIPLATIN
     Indication: Rectal cancer
     Dosage: DOSAGE IS UNCERTAIN.
     Route: 041
     Dates: start: 20111106, end: 20130301
  8. IRINOTECAN HYDROCHLORIDE [Concomitant]
     Active Substance: IRINOTECAN HYDROCHLORIDE
     Indication: Rectal cancer
     Dosage: DOSAGE IS UNCERTAIN.
     Route: 041
     Dates: start: 20130619, end: 20140117
  9. FLUOROURACIL [Concomitant]
     Active Substance: FLUOROURACIL
     Indication: Rectal cancer
     Dosage: DOSAGE IS UNCERTAIN.
     Route: 040
     Dates: start: 20130619, end: 20140117
  10. FLUOROURACIL [Concomitant]
     Active Substance: FLUOROURACIL
     Dosage: DOSAGE IS UNCERTAIN.
     Route: 041
     Dates: start: 20130619, end: 20140117
  11. LEVOLEUCOVORIN CALCIUM [Concomitant]
     Active Substance: LEVOLEUCOVORIN CALCIUM
     Indication: Rectal cancer
     Dosage: DOSAGE IS UNCERTAIN.
     Route: 041
     Dates: start: 20130619, end: 20140117
  12. OXYCONTIN [Concomitant]
     Active Substance: OXYCODONE HYDROCHLORIDE
     Indication: Tumour pain
     Dosage: 20ML,1 TIMES IN 1DAY
     Route: 048
     Dates: start: 20140612
  13. OXYCODONE HYDROCHLORIDE [Concomitant]
     Active Substance: OXYCODONE HYDROCHLORIDE
     Indication: Tumour pain
     Dosage: 5MG,1 TIMES IN 1DAY
     Route: 048
     Dates: start: 20140612
  14. RABEPRAZOLE SODIUM [Concomitant]
     Active Substance: RABEPRAZOLE SODIUM
     Indication: Prophylaxis
     Dosage: 4 MILLIGRAM, QD
     Route: 048
     Dates: start: 20140605
  15. LOXOPROFEN SODIUM [Concomitant]
     Active Substance: LOXOPROFEN SODIUM
     Indication: Tumour pain
     Dosage: 100MG,6 TIMES IN 1DAY
     Route: 048
     Dates: start: 20140605
  16. MAGNESIUM OXIDE [Concomitant]
     Active Substance: MAGNESIUM OXIDE
     Indication: Constipation
     Dosage: DOSAGE IS UNCERTAIN.
     Route: 048
  17. DEXAMETHASONE SODIUM METASULFOBENZOATE [Concomitant]
     Active Substance: DEXAMETHASONE SODIUM METASULFOBENZOATE
     Dosage: UNK
     Route: 062
  18. TOBRAMYCIN [Concomitant]
     Active Substance: TOBRAMYCIN
     Route: 062
  19. AZUNOL [Concomitant]
     Indication: Supportive care
     Dosage: UNK
     Route: 048

REACTIONS (2)
  - Death [Fatal]
  - Decreased appetite [Not Recovered/Not Resolved]

NARRATIVE: CASE EVENT DATE: 20140410
